FAERS Safety Report 11453260 (Version 1)
Quarter: 2015Q3

REPORT INFORMATION
  Report Type: Spontaneous
  Country: US (occurrence: US)
  Receive Date: 20150903
  Receipt Date: 20150903
  Transmission Date: 20151125
  Serious: No
  Sender: FDA-Public Use
  Company Number: US-PFIZER INC-2015282501

PATIENT
  Sex: Female

DRUGS (1)
  1. ADVIL PM [Suspect]
     Active Substance: DIPHENHYDRAMINE CITRATE\IBUPROFEN
     Dosage: UNK

REACTIONS (6)
  - Hangover [Unknown]
  - Mobility decreased [Unknown]
  - Impaired driving ability [Unknown]
  - Feeling abnormal [Unknown]
  - Hypersomnia [Unknown]
  - Drug intolerance [Unknown]

NARRATIVE: CASE EVENT DATE: 20150821
